FAERS Safety Report 9916640 (Version 2)
Quarter: 2014Q1

REPORT INFORMATION
  Report Type: Spontaneous
  Country: IE (occurrence: IE)
  Receive Date: 20140221
  Receipt Date: 20140228
  Transmission Date: 20141002
  Serious: Yes (Hospitalization)
  Sender: FDA-Public Use
  Company Number: IE-009507513-1402IRL010348

PATIENT
  Age: 17 Year
  Sex: Male

DRUGS (4)
  1. DEXAMETHASONE [Suspect]
     Indication: ACUTE LYMPHOCYTIC LEUKAEMIA
     Dosage: 10 MG, QD
     Route: 048
  2. DEXAMETHASONE [Suspect]
     Dosage: DOSES VARIED, TO A MAXIMUM OF 20MG PER DAY
     Route: 048
  3. DEXAMETHASONE [Suspect]
     Dosage: DOSES VARIED, TO A MAXIMUM OF 20MG PER DAY
     Route: 048
  4. DEXAMETHASONE [Suspect]
     Dosage: DOSES VARIED, TO A MAXIMUM OF 20MG PER DAY
     Route: 048

REACTIONS (1)
  - Mania [Recovered/Resolved]
